FAERS Safety Report 19923016 (Version 1)
Quarter: 2021Q4

REPORT INFORMATION
  Report Type: Spontaneous
  Country: US (occurrence: US)
  Receive Date: 20211005
  Receipt Date: 20211005
  Transmission Date: 20220303
  Serious: Yes (Hospitalization)
  Sender: FDA-Public Use
  Company Number: None

PATIENT
  Age: 9 Year
  Sex: Female
  Weight: 34.3 kg

DRUGS (5)
  1. DAUNORUBICIN [Suspect]
     Active Substance: DAUNORUBICIN
     Dates: end: 20210921
  2. DEXAMETHASONE [Suspect]
     Active Substance: DEXAMETHASONE
     Dates: end: 20210914
  3. METHOTREXATE [Suspect]
     Active Substance: METHOTREXATE
     Dates: end: 20210928
  4. ONCASPAR [Suspect]
     Active Substance: PEGASPARGASE
     Dates: end: 20210903
  5. VINCRISTINE SULFATE [Suspect]
     Active Substance: VINCRISTINE SULFATE
     Dates: end: 20210921

REACTIONS (7)
  - Hypertension [None]
  - Headache [None]
  - Unresponsive to stimuli [None]
  - Disorganised speech [None]
  - Posterior reversible encephalopathy syndrome [None]
  - Electroencephalogram abnormal [None]
  - Seizure [None]

NARRATIVE: CASE EVENT DATE: 20210929
